FAERS Safety Report 9849978 (Version 1)
Quarter: 2014Q1

REPORT INFORMATION
  Report Type: Spontaneous
  Country: US (occurrence: US)
  Receive Date: 20140128
  Receipt Date: 20140128
  Transmission Date: 20141002
  Serious: Yes (Other)
  Sender: FDA-Public Use
  Company Number: US-BAYER-2014-014179

PATIENT
  Sex: Female

DRUGS (1)
  1. MIRENA [Suspect]
     Dosage: DAILY DOSE 20 ?G
     Dates: start: 20130717

REACTIONS (6)
  - Genital haemorrhage [None]
  - Pelvic pain [None]
  - Depression [None]
  - Fatigue [None]
  - Irritability [None]
  - Mood altered [None]
